FAERS Safety Report 9358340 (Version 1)
Quarter: 2013Q2

REPORT INFORMATION
  Report Type: Spontaneous
  Country: US (occurrence: None)
  Receive Date: 20130619
  Receipt Date: 20130619
  Transmission Date: 20140414
  Serious: Yes (Hospitalization)
  Sender: FDA-Public Use
  Company Number: None

PATIENT
  Age: 82 Year
  Sex: Female

DRUGS (2)
  1. BEVACIZUMAB [Suspect]
     Indication: GLIOBLASTOMA
     Dosage: DAYS 1 + 15
     Route: 042
     Dates: start: 20130311, end: 20130605
  2. CARBOPLATIN [Suspect]
     Dosage: AUD OF 6  DAY 1
     Route: 042
     Dates: start: 20130327, end: 20130522

REACTIONS (4)
  - Hypoaesthesia [None]
  - Convulsion [None]
  - VIIth nerve paralysis [None]
  - Dysarthria [None]
